FAERS Safety Report 19653945 (Version 1)
Quarter: 2021Q3

REPORT INFORMATION
  Report Type: Report from Study
  Country: IT (occurrence: IT)
  Receive Date: 20210804
  Receipt Date: 20210804
  Transmission Date: 20211014
  Serious: Yes (Hospitalization)
  Sender: FDA-Public Use
  Company Number: IT-CELLTRION INC.-2021IT010005

PATIENT

DRUGS (8)
  1. PERTUZUMAB. [Suspect]
     Active Substance: PERTUZUMAB
     Indication: BREAST CANCER
     Dosage: 840 MG, LAST DOSE BEFORE LAST DOSE BEFORE SAE 02/JUL/2019
     Route: 042
     Dates: start: 20190430
  2. TRIMETON [Concomitant]
     Active Substance: CHLORPHENIRAMINE MALEATE
     Dosage: UNK
     Dates: start: 20190702, end: 20190703
  3. MEPRAL [OMEPRAZOLE] [Concomitant]
     Indication: GASTROINTESTINAL DISORDER PROPHYLAXIS
     Dosage: UNK
     Dates: start: 20190702
  4. CARBOPLATINO [Concomitant]
     Active Substance: CARBOPLATIN
     Dosage: 200 MG, LAST DOSE BEFORE SAE 03/JUL/2019
     Route: 042
     Dates: start: 20190430
  5. ATEZOLIZUMAB. [Suspect]
     Active Substance: ATEZOLIZUMAB
     Indication: BREAST CANCER
     Dosage: DATE OF LAST DOSE OF ATEZOLIZUMAB OF 1200 MG PRIOR TO SAE ONSET: 02/JUL/2019
     Route: 042
     Dates: start: 20190430
  6. ZOFRAN [Concomitant]
     Active Substance: ONDANSETRON HYDROCHLORIDE
     Indication: VOMITING
     Dosage: UNK
     Dates: start: 20190702, end: 20190702
  7. TAXOL [Concomitant]
     Active Substance: PACLITAXEL
     Dosage: LAST DOSE BEFORE SAE 03/JUL/2019
     Route: 042
     Dates: start: 20190430
  8. TRASTUZUMAB (UNKNOWN) [Suspect]
     Active Substance: TRASTUZUMAB
     Indication: BREAST CANCER
     Dosage: LAST DOSE BEFORE SAE 02/JUL/2019 DOSE?472 (UNIT NOT REPORTED)
     Route: 042
     Dates: start: 20190430

REACTIONS (3)
  - Off label use [Unknown]
  - Fatigue [Recovered/Resolved]
  - Hypersensitivity [Recovered/Resolved]

NARRATIVE: CASE EVENT DATE: 20190430
